FAERS Safety Report 7933849-9 (Version None)
Quarter: 2011Q4

REPORT INFORMATION
  Report Type: 
  Country: None (occurrence: None)
  Receive Date: 20111122
  Receipt Date: 20111116
  Transmission Date: 20120403
  Serious: Yes (Hospitalization)
  Sender: FDA-Public Use
  Company Number: GB-ROCHE-1013886

PATIENT
  Age: 57 Year
  Sex: Male
  Weight: 84.1 kg

DRUGS (6)
  1. PERINDOPRIL ERBUMINE [Concomitant]
     Dates: start: 20101201
  2. VEMURAFENIB [Suspect]
     Indication: MALIGNANT MELANOMA
     Route: 048
     Dates: start: 20110920, end: 20111115
  3. PROPRANOLOL [Concomitant]
     Dates: start: 20101201
  4. LEVITRA [Concomitant]
     Dates: start: 20111010
  5. SERTRALINE HYDROCHLORIDE [Concomitant]
     Dates: start: 20110601
  6. OMEPRAZOLE [Concomitant]
     Dates: start: 20111003

REACTIONS (1)
  - RENAL FAILURE ACUTE [None]
